FAERS Safety Report 8484813-5 (Version None)
Quarter: 2012Q3

REPORT INFORMATION
  Report Type: 
  Country: None (occurrence: None)
  Receive Date: 20120703
  Receipt Date: 20120626
  Transmission Date: 20120928
  Serious: Yes (Hospitalization)
  Sender: FDA-Public Use
  Company Number: DE-PFIZER INC-2012086334

PATIENT
  Age: 76 Year
  Sex: Male
  Weight: 174.5 kg

DRUGS (9)
  1. CORTISONE ACETATE [Concomitant]
     Indication: BLOOD CORTICOTROPHIN DECREASED
     Dosage: UNK
     Dates: start: 20030303
  2. TESTOSTERONE [Concomitant]
     Indication: BLOOD LUTEINISING HORMONE DECREASED
     Dosage: UNK
     Dates: start: 20030721
  3. EUTHYROX [Concomitant]
     Indication: HYPOTHYROIDISM
     Dosage: UNK
     Dates: start: 20040906
  4. GENOTROPIN [Suspect]
     Indication: HYPOPITUITARISM
     Dosage: 0.1 MG, 1X/DAY
     Dates: start: 20040503
  5. ACETYLSALICYLIC ACID [Concomitant]
     Indication: ESSENTIAL HYPERTENSION
     Dosage: UNK
     Dates: start: 20061025
  6. GENOTROPIN [Suspect]
     Dosage: 0.3 MG, 1X/DAY
     Dates: start: 20040906
  7. TESTOSTERONE [Concomitant]
     Indication: HYPOGONADISM MALE
  8. TESTOSTERONE [Concomitant]
     Indication: BLOOD FOLLICLE STIMULATING HORMONE DECREASED
  9. FENOFIBRATE [Concomitant]
     Indication: HYPERLIPIDAEMIA
     Dosage: UNK
     Dates: start: 20030303

REACTIONS (2)
  - ESSENTIAL HYPERTENSION [None]
  - AORTIC VALVE STENOSIS [None]
